FAERS Safety Report 11169990 (Version 2)
Quarter: 2017Q2

REPORT INFORMATION
  Report Type: Report from Study
  Country: GB (occurrence: GB)
  Receive Date: 20150608
  Receipt Date: 20170413
  Transmission Date: 20170829
  Serious: Yes (Hospitalization)
  Sender: FDA-Public Use
  Company Number: GB-AMGEN-GBRSP2015054075

PATIENT
  Age: 77 Year
  Sex: Male

DRUGS (1)
  1. ARANESP [Suspect]
     Active Substance: DARBEPOETIN ALFA
     Indication: PRODUCT USED FOR UNKNOWN INDICATION
     Dosage: 30 MUG, Q2WK
     Route: 065

REACTIONS (4)
  - Lower respiratory tract infection [Unknown]
  - Fall [Unknown]
  - Urinary tract infection [Unknown]
  - Hip fracture [Unknown]
